FAERS Safety Report 11281094 (Version 1)
Quarter: 2015Q3

REPORT INFORMATION
  Report Type: Spontaneous
  Country: JP (occurrence: JP)
  Receive Date: 20150717
  Receipt Date: 20150717
  Transmission Date: 20151125
  Serious: Yes (Hospitalization, Other)
  Sender: FDA-Public Use
  Company Number: JP-JNJFOC-20150707753

PATIENT
  Age: 50 Year
  Sex: Male

DRUGS (1)
  1. TYLENOL A [Suspect]
     Active Substance: ACETAMINOPHEN
     Indication: HEADACHE
     Dosage: TOOK 1 TABLET.
     Route: 048
     Dates: start: 20150708

REACTIONS (4)
  - Pruritus [Not Recovered/Not Resolved]
  - Rash pruritic [None]
  - Swelling face [Not Recovered/Not Resolved]
  - Urticaria [Not Recovered/Not Resolved]

NARRATIVE: CASE EVENT DATE: 20150708
